FAERS Safety Report 18642084 (Version 2)
Quarter: 2021Q1

REPORT INFORMATION
  Report Type: Spontaneous
  Country: US (occurrence: US)
  Receive Date: 20201221
  Receipt Date: 20210127
  Transmission Date: 20210419
  Serious: Yes (Life-Threatening, Hospitalization)
  Sender: FDA-Public Use
  Company Number: US-TEVA-2020-US-1860339

PATIENT
  Age: 17 Year
  Sex: Female

DRUGS (1)
  1. IBUPROFEN. [Suspect]
     Active Substance: IBUPROFEN
     Indication: INTENTIONAL OVERDOSE
     Dosage: MORE THAN 2000 MG/KG
     Route: 065

REACTIONS (8)
  - Acute kidney injury [Recovered/Resolved]
  - Cardiopulmonary failure [Recovered/Resolved]
  - Compartment syndrome [Recovered/Resolved]
  - Intentional overdose [Unknown]
  - Toxicity to various agents [Recovered/Resolved]
  - Arrhythmia [Recovered/Resolved]
  - Limb discomfort [Recovered/Resolved]
  - Metabolic acidosis [Recovered/Resolved]
